FAERS Safety Report 24588023 (Version 2)
Quarter: 2024Q4

REPORT INFORMATION
  Report Type: Report from Study
  Country: CA (occurrence: CA)
  Receive Date: 20241107
  Receipt Date: 20241129
  Transmission Date: 20250114
  Serious: Yes (Hospitalization, Other)
  Sender: TAKEDA
  Company Number: CA-TAKEDA-2021TUS053591

PATIENT
  Sex: Male
  Weight: 24 kg

DRUGS (19)
  1. TEDUGLUTIDE [Suspect]
     Active Substance: TEDUGLUTIDE
     Indication: Short-bowel syndrome
     Dosage: UNK
  2. TEDUGLUTIDE [Suspect]
     Active Substance: TEDUGLUTIDE
     Dosage: 0.1 MILLILITER, QD
     Dates: start: 20200114
  3. TEDUGLUTIDE [Suspect]
     Active Substance: TEDUGLUTIDE
     Dosage: 1 MILLIGRAM, QD
  4. TEDUGLUTIDE [Suspect]
     Active Substance: TEDUGLUTIDE
     Dosage: 1.6 MILLIGRAM, QD
  5. TEDUGLUTIDE [Suspect]
     Active Substance: TEDUGLUTIDE
     Dosage: 1.6 MILLIGRAM, QD
  6. AMOXICILLIN\CLAVULANATE POTASSIUM [Suspect]
     Active Substance: AMOXICILLIN\CLAVULANATE POTASSIUM
     Indication: Product used for unknown indication
     Dosage: UNK UNK, QOD
  7. TPN [Concomitant]
     Active Substance: AMINO ACIDS\DEXTROSE\ELECTROLYTES NOS\SOYBEAN OIL
     Dosage: 985 MILLILITER
  8. LOPERAMIDE [Concomitant]
     Active Substance: LOPERAMIDE
     Dosage: 2 MILLIGRAM, BID
  9. LOPERAMIDE [Concomitant]
     Active Substance: LOPERAMIDE
     Dosage: 4 MILLIGRAM, BID
  10. CIPRO [Concomitant]
     Active Substance: CIPROFLOXACIN HYDROCHLORIDE
     Dosage: 1 DOSAGE FORM, BID
  11. AMOXICILLIN\CLAVULANATE POTASSIUM [Concomitant]
     Active Substance: AMOXICILLIN\CLAVULANATE POTASSIUM
     Dosage: 0.5 DOSAGE FORM, BID
  12. AMOXICILLIN\CLAVULANATE POTASSIUM [Concomitant]
     Active Substance: AMOXICILLIN\CLAVULANATE POTASSIUM
     Dosage: UNK, BID
  13. CISAPRIDE [Concomitant]
     Active Substance: CISAPRIDE
     Indication: Gastrointestinal disorder
     Dosage: 3 MILLIGRAM, BID
  14. CISAPRIDE [Concomitant]
     Active Substance: CISAPRIDE
     Dosage: UNK, QOD
  15. CISAPRIDE [Concomitant]
     Active Substance: CISAPRIDE
     Dosage: 2.5 MILLIGRAM, BID
  16. CIPROFLOXACIN [Concomitant]
     Active Substance: CIPROFLOXACIN
     Dosage: 250 MILLIGRAM, BID
  17. VITAMIN D [Concomitant]
     Active Substance: VITAMIN D NOS
     Dosage: 1000 INTERNATIONAL UNIT, QD
  18. ZINC CITRATE [Concomitant]
     Active Substance: ZINC CITRATE
     Dosage: 50 MILLIGRAM, QD
  19. EBASTINE [Concomitant]
     Active Substance: EBASTINE
     Dosage: UNK

REACTIONS (12)
  - Pertussis [Recovering/Resolving]
  - Weight increased [Recovered/Resolved]
  - Urine sodium decreased [Recovered/Resolved]
  - Lymphadenopathy [Not Recovered/Not Resolved]
  - Weight decreased [Recovered/Resolved]
  - Gastroenteritis viral [Unknown]
  - Aspartate aminotransferase increased [Unknown]
  - Blood magnesium increased [Unknown]
  - Blood 25-hydroxycholecalciferol decreased [Unknown]
  - Nasopharyngitis [Unknown]
  - Flatulence [Unknown]
  - Abdominal pain lower [Recovered/Resolved]

NARRATIVE: CASE EVENT DATE: 20220101
